FAERS Safety Report 8105735-5 (Version None)
Quarter: 2012Q1

REPORT INFORMATION
  Report Type: 
  Country: None (occurrence: None)
  Receive Date: 20120201
  Receipt Date: 20120130
  Transmission Date: 20120608
  Serious: Yes (Death, Hospitalization)
  Sender: FDA-Public Use
  Company Number: BR-AMGEN-BRACT2011045363

PATIENT
  Age: 53 Year
  Sex: Female

DRUGS (2)
  1. PACLITAXEL [Concomitant]
     Dosage: 1.5 MG/M2, QD
     Route: 042
     Dates: start: 20110823, end: 20110827
  2. DENOSUMAB [Suspect]
     Indication: METASTASES TO BONE
     Dosage: 120 MG, Q4WK
     Route: 058
     Dates: start: 20090627

REACTIONS (4)
  - PYREXIA [None]
  - PNEUMONIA [None]
  - RESPIRATORY FAILURE [None]
  - DIABETES WITH HYPEROSMOLARITY [None]
